FAERS Safety Report 8590501 (Version 2)
Quarter: 2012Q4

REPORT INFORMATION
  Report Type: 
  Country: GB (occurrence: GB)
  Receive Date: 20120601
  Receipt Date: 20120921
  Transmission Date: 20130627
  Serious: Yes (Disabling)
  Sender: FDA-Public Use
  Company Number: GB-SANOFI-AVENTIS-2012SA036439

PATIENT
  Age: 67 Year
  Sex: Male
  Weight: 75.2 kg

DRUGS (13)
  1. CLOPIDOGREL BISULFATE [Suspect]
     Indication: DRUG USE FOR UNKNOWN INDICATION
     Route: 065
     Dates: start: 20120220
  2. DESMOPRESSIN [Concomitant]
     Dates: start: 20120110
  3. BETAHISTINE [Concomitant]
     Route: 065
     Dates: start: 20120208, end: 20120307
  4. LAMOTRIGINE [Concomitant]
     Dates: start: 20120220, end: 20120418
  5. OMEPRAZOLE [Concomitant]
     Dates: start: 20120220, end: 20120412
  6. SERETIDE [Concomitant]
     Dates: start: 20120220, end: 20120412
  7. ATORVASTATIN [Concomitant]
     Dates: start: 20120220, end: 20120412
  8. CALCICHEW D3 [Concomitant]
     Dates: start: 20120220, end: 20120412
  9. CITALOPRAM [Concomitant]
     Dates: start: 20120220, end: 20120412
  10. PERSANTIN [Concomitant]
     Dates: start: 20120426
  11. ASPIRIN [Concomitant]
     Dates: start: 20120426
  12. PARACETAMOL [Concomitant]
     Dates: start: 20120508, end: 20120509
  13. FOLIC ACID [Concomitant]
     Dates: start: 20120508

REACTIONS (2)
  - Convulsion [Recovered/Resolved]
  - Drop attacks [Recovered/Resolved]
